FAERS Safety Report 6567604 (Version 3)
Quarter: 2013Q3

REPORT INFORMATION
  Report Type: Spontaneous
  Country: US (occurrence: US)
  Receive Date: 20080220
  Receipt Date: 20130711
  Transmission Date: 20140515
  Serious: Yes (Hospitalization)
  Sender: FDA-Public Use
  Company Number: CHPA2008US02717

PATIENT
  Age: 81 Year
  Sex: Female

DRUGS (2)
  1. PERDIEM OVERNIGHT RELIEF PILLS [Suspect]
     Indication: CONSTIPATION
     Dosage: 1-2 PILLS FOR LAST 10 YEARS
     Route: 048
  2. ASPIRIN [Concomitant]
     Dosage: UNK, UNK

REACTIONS (4)
  - Diverticulitis [Not Recovered/Not Resolved]
  - Blood cholesterol increased [Not Recovered/Not Resolved]
  - Constipation [Recovered/Resolved]
  - Incorrect drug administration duration [Unknown]
